FAERS Safety Report 10006811 (Version 1)
Quarter: 2014Q1

REPORT INFORMATION
  Report Type: Spontaneous
  Country: US (occurrence: None)
  Receive Date: 20140311
  Receipt Date: 20140311
  Transmission Date: 20141002
  Serious: Yes (Other)
  Sender: FDA-Public Use
  Company Number: 2014P1001851

PATIENT
  Age: 72 Year
  Sex: Female
  Weight: 56.7 kg

DRUGS (3)
  1. ACTIMMUNE [Suspect]
     Indication: HEPATITIS C
     Dates: start: 201401
  2. RIBAVIRIN [Suspect]
  3. SOVALDI [Suspect]

REACTIONS (3)
  - Anaemia [None]
  - Dyspnoea [None]
  - Haemoglobin decreased [None]
